FAERS Safety Report 17887174 (Version 1)
Quarter: 2020Q2

REPORT INFORMATION
  Report Type: Spontaneous
  Country: DE (occurrence: DE)
  Receive Date: 20200612
  Receipt Date: 20200612
  Transmission Date: 20200714
  Serious: Yes (Death, Life-Threatening, Hospitalization, Other)
  Sender: FDA-Public Use
  Company Number: DE-AUROBINDO-AUR-APL-2020-028067

PATIENT
  Age: 56 Year
  Sex: Male

DRUGS (1)
  1. METFORMIN [Suspect]
     Active Substance: METFORMIN HYDROCHLORIDE
     Indication: TYPE 2 DIABETES MELLITUS
     Dosage: UNK
     Route: 065

REACTIONS (8)
  - Circulatory collapse [Fatal]
  - Vomiting [Unknown]
  - Lactic acidosis [Fatal]
  - Cardiac arrest [Recovered/Resolved]
  - Chest pain [Unknown]
  - Cyanosis [Unknown]
  - Diarrhoea [Unknown]
  - Toxicity to various agents [Fatal]
